FAERS Safety Report 23758439 (Version 1)
Quarter: 2024Q2

REPORT INFORMATION
  Report Type: Spontaneous
  Country: CA (occurrence: CA)
  Receive Date: 20240418
  Receipt Date: 20240418
  Transmission Date: 20240715
  Serious: Yes (Other)
  Sender: FDA-Public Use
  Company Number: CA-TEVA-VS-3183200

PATIENT
  Age: 68 Year
  Sex: Male

DRUGS (2)
  1. CISPLATIN [Suspect]
     Active Substance: CISPLATIN
     Indication: Non-small cell lung cancer
     Dosage: DOSE FORM: SOLUTION INTRAVENOUS, BP SINGLE DOSE VIALS. 10MG/10ML,?50MG/50ML AND 100MG/100ML.PRESE...
     Route: 065
  2. CISPLATIN [Suspect]
     Active Substance: CISPLATIN
     Indication: Non-small cell lung cancer
     Route: 065

REACTIONS (6)
  - Hepatic artery thrombosis [Unknown]
  - Hepatic infarction [Unknown]
  - Portal vein thrombosis [Unknown]
  - Splenic artery thrombosis [Unknown]
  - Splenic infarction [Unknown]
  - Off label use [Unknown]
